FAERS Safety Report 22027829 (Version 3)
Quarter: 2023Q1

REPORT INFORMATION
  Report Type: Spontaneous
  Country: US (occurrence: US)
  Receive Date: 20230223
  Receipt Date: 20230313
  Transmission Date: 20230417
  Serious: Yes (Other)
  Sender: FDA-Public Use
  Company Number: ALC2023US000997

PATIENT
  Age: 73 Year
  Sex: Female

DRUGS (1)
  1. SYSTANE HYDRATION PF PRESERVATIVE FREE [Suspect]
     Active Substance: POLYETHYLENE GLYCOL 400\PROPYLENE GLYCOL
     Indication: Product used for unknown indication
     Dosage: 1 DRP PER EYE
     Route: 047

REACTIONS (3)
  - Product contamination microbial [Unknown]
  - Product use issue [Unknown]
  - Eye irritation [Recovered/Resolved]

NARRATIVE: CASE EVENT DATE: 20230214
